FAERS Safety Report 6491445-7 (Version None)
Quarter: 2009Q4

REPORT INFORMATION
  Report Type: 
  Country: None (occurrence: None)
  Receive Date: 20091123
  Receipt Date: 20090731
  Transmission Date: 20100525
  Serious: No
  Sender: FDA-Public Use
  Company Number: 8049726

PATIENT
  Age: 49 Year
  Sex: Female
  Weight: 97 kg

DRUGS (5)
  1. CIMZIA [Suspect]
     Indication: CROHN'S DISEASE
     Dosage: 400 MG SC
     Route: 058
     Dates: start: 20090604
  2. APRISO [Concomitant]
  3. NORVASC [Concomitant]
  4. KAPIDEX [Concomitant]
  5. PREDNISONE [Concomitant]

REACTIONS (5)
  - DYSPNOEA EXERTIONAL [None]
  - FATIGUE [None]
  - GINGIVAL BLEEDING [None]
  - LYMPHADENOPATHY [None]
  - MIGRAINE [None]
